FAERS Safety Report 6131301-7 (Version None)
Quarter: 2009Q1

REPORT INFORMATION
  Report Type: 
  Country: None (occurrence: None)
  Receive Date: 20090325
  Receipt Date: 20080522
  Transmission Date: 20090719
  Serious: Yes (Death)
  Sender: FDA-Public Use
  Company Number: US-BRISTOL-MYERS SQUIBB COMPANY-14107163

PATIENT
  Age: 5 Decade
  Sex: Male

DRUGS (8)
  1. ERBITUX [Suspect]
     Indication: HEAD AND NECK CANCER
     Dates: start: 20080306
  2. COMPAZINE [Concomitant]
  3. ALDACTONE [Concomitant]
  4. DOXAZOSIN MESYLATE [Concomitant]
  5. OXYCODONE HCL [Concomitant]
  6. METHADONE [Concomitant]
  7. AMBIEN [Concomitant]
  8. DEXAMETHASONE TAB [Concomitant]

REACTIONS (1)
  - INFUSION RELATED REACTION [None]
